FAERS Safety Report 17776164 (Version 1)
Quarter: 2020Q2

REPORT INFORMATION
  Report Type: Spontaneous
  Country: US (occurrence: US)
  Receive Date: 20200513
  Receipt Date: 20200513
  Transmission Date: 20200714
  Serious: Yes (Hospitalization)
  Sender: FDA-Public Use
  Company Number: None

PATIENT
  Sex: Female

DRUGS (16)
  1. TACROLIMUS. [Suspect]
     Active Substance: TACROLIMUS
     Indication: LIVER TRANSPLANT
     Route: 048
     Dates: start: 20170109
  2. BUT APAP CAF [Concomitant]
  3. PAROXETINE. [Concomitant]
     Active Substance: PAROXETINE
  4. PREVONT [Concomitant]
  5. SUMATRIPTAN. [Concomitant]
     Active Substance: SUMATRIPTAN
  6. CLOPIDOGREL [Concomitant]
     Active Substance: CLOPIDOGREL BISULFATE
  7. LEVOTHYROXIN [Concomitant]
     Active Substance: LEVOTHYROXINE
  8. LISNOPRIL [Concomitant]
  9. ALPRAZOLAM. [Concomitant]
     Active Substance: ALPRAZOLAM
  10. VITAMIN D [Concomitant]
     Active Substance: VITAMIN D NOS
  11. MYCOPHENOLATE [Concomitant]
     Active Substance: MYCOPHENOLIC ACID
  12. METOPROLOL TARTRATE. [Concomitant]
     Active Substance: METOPROLOL TARTRATE
  13. TIZANDINE [Concomitant]
     Active Substance: TIZANIDINE
  14. PREDNISONE. [Concomitant]
     Active Substance: PREDNISONE
  15. HYDROCO APAP [Concomitant]
  16. CLOPIDOGREL [Concomitant]
     Active Substance: CLOPIDOGREL BISULFATE

REACTIONS (1)
  - Intracranial aneurysm [None]
